FAERS Safety Report 12989298 (Version 1)
Quarter: 2016Q4

REPORT INFORMATION
  Report Type: Spontaneous
  Country: DE (occurrence: DE)
  Receive Date: 20161201
  Receipt Date: 20161201
  Transmission Date: 20170207
  Serious: Yes (Other)
  Sender: FDA-Public Use
  Company Number: DE-SUN PHARMACEUTICAL INDUSTRIES LTD-2016RR-128427

PATIENT
  Age: 48 Year

DRUGS (1)
  1. CIPROFLOXACIN. [Suspect]
     Active Substance: CIPROFLOXACIN
     Indication: CYSTITIS NONINFECTIVE
     Dosage: UNK
     Route: 048
     Dates: start: 20160414

REACTIONS (6)
  - Arthralgia [Unknown]
  - Tendon disorder [Unknown]
  - Motor dysfunction [Unknown]
  - Pain in extremity [Unknown]
  - Tendonitis [Unknown]
  - Impaired work ability [Unknown]

NARRATIVE: CASE EVENT DATE: 20160420
